FAERS Safety Report 18014371 (Version 2)
Quarter: 2020Q3

REPORT INFORMATION
  Report Type: Report from Study
  Country: CA (occurrence: CA)
  Receive Date: 20200713
  Receipt Date: 20200731
  Transmission Date: 20201103
  Serious: Yes (Other)
  Sender: FDA-Public Use
  Company Number: CA-TEVA-2020-CA-1798896

PATIENT
  Age: 47 Year
  Sex: Female

DRUGS (5)
  1. VITAMIN D [Concomitant]
     Active Substance: VITAMIN D NOS
  2. VITAMIN B12 [Concomitant]
     Active Substance: CYANOCOBALAMIN
  3. IRON [Concomitant]
     Active Substance: IRON
  4. OMEGA 3 COMPLEX [Concomitant]
  5. COPAXONE [Suspect]
     Active Substance: GLATIRAMER ACETATE
     Indication: MULTIPLE SCLEROSIS
     Dosage: 20 MILLIGRAM DAILY;
     Dates: start: 20090721, end: 2020

REACTIONS (6)
  - Blood pressure decreased [Unknown]
  - Aphasia [Unknown]
  - Coordination abnormal [Unknown]
  - Lip swelling [Unknown]
  - Swollen tongue [Unknown]
  - Erythema [Unknown]

NARRATIVE: CASE EVENT DATE: 20200624
